FAERS Safety Report 10029465 (Version 6)
Quarter: 2014Q2

REPORT INFORMATION
  Report Type: Report from Study
  Country: AU (occurrence: AU)
  Receive Date: 20140322
  Receipt Date: 20140506
  Transmission Date: 20141212
  Serious: Yes (Hospitalization)
  Sender: FDA-Public Use
  Company Number: PHHY2014AU032011

PATIENT
  Age: 39 Year
  Sex: Male

DRUGS (9)
  1. CLOZARIL [Suspect]
     Indication: SCHIZOPHRENIA
     Dosage: 400 MG, UNK
     Route: 048
     Dates: start: 20131115
  2. CLOZARIL [Suspect]
     Dosage: 450 UNK, UNK
     Route: 048
     Dates: start: 20140225
  3. CLOZARIL [Suspect]
     Dosage: 500 MG, UNK
     Route: 048
     Dates: start: 20140303
  4. CLOZARIL [Suspect]
     Dosage: 600 MG, UNK
     Route: 048
     Dates: start: 20140311
  5. CLOZARIL [Suspect]
     Dosage: 700 MG, UNK
     Route: 048
     Dates: start: 20140319
  6. CLOZARIL [Suspect]
     Dosage: 800 MG, UNK
     Route: 048
     Dates: start: 20140408
  7. CLOZARIL [Suspect]
     Dosage: 900 MG, UNK
     Route: 048
     Dates: start: 20140420
  8. FLUOXETINE [Concomitant]
     Dosage: 20 MG, QD (MANE)
     Route: 048
  9. SODIUM VALPROATE [Concomitant]
     Indication: CONVULSION
     Dosage: 500 MG, QD (NOCTE)
     Route: 048

REACTIONS (3)
  - Mental impairment [Unknown]
  - Antipsychotic drug level increased [Unknown]
  - No therapeutic response [Unknown]
